FAERS Safety Report 11267824 (Version 1)
Quarter: 2015Q3

REPORT INFORMATION
  Report Type: Spontaneous
  Country: US (occurrence: US)
  Receive Date: 20150713
  Receipt Date: 20150713
  Transmission Date: 20151125
  Serious: No
  Sender: FDA-Public Use
  Company Number: US-TAKEDA-2013-05877

PATIENT
  Sex: Female

DRUGS (4)
  1. VELCADE [Suspect]
     Active Substance: BORTEZOMIB
     Dosage: 2.4 MG/M2, UNK
     Dates: start: 20130829
  2. VELCADE [Suspect]
     Active Substance: BORTEZOMIB
     Dosage: UNK
     Dates: end: 20131031
  3. VELCADE [Suspect]
     Active Substance: BORTEZOMIB
     Dosage: 2.7 MG/M2, UNK
     Dates: start: 20130801
  4. VELCADE [Suspect]
     Active Substance: BORTEZOMIB
     Indication: PLASMA CELL MYELOMA
     Dosage: UNK, 1/WEEK
     Route: 058
     Dates: start: 20130718

REACTIONS (2)
  - Neuropathy peripheral [Unknown]
  - Nonspecific reaction [Unknown]
